FAERS Safety Report 9628318 (Version 2)
Quarter: 2013Q4

REPORT INFORMATION
  Report Type: Report from Study
  Country: CL (occurrence: CL)
  Receive Date: 20131017
  Receipt Date: 20131122
  Transmission Date: 20140711
  Serious: Yes (Death, Hospitalization, Other)
  Sender: FDA-Public Use
  Company Number: PHHY2013CL116243

PATIENT
  Age: 83 Year
  Sex: Female

DRUGS (1)
  1. TAREG [Suspect]
     Indication: HYPERTENSION
     Route: 048

REACTIONS (3)
  - Bladder cancer [Fatal]
  - Haemorrhage [Fatal]
  - Bone cancer [Fatal]
